FAERS Safety Report 15683757 (Version 1)
Quarter: 2018Q4

REPORT INFORMATION
  Report Type: Spontaneous
  Country: US (occurrence: US)
  Receive Date: 20181204
  Receipt Date: 20181204
  Transmission Date: 20190205
  Serious: Yes (Hospitalization)
  Sender: FDA-Public Use
  Company Number: US-PIRAMAL ENTERPRISES LIMITED-2018-PEL-003522

PATIENT

DRUGS (1)
  1. GABLOFEN [Suspect]
     Active Substance: BACLOFEN
     Indication: MUSCLE SPASTICITY
     Dosage: 129.92 MICROGRAM, QD
     Route: 037

REACTIONS (6)
  - Agitation [Recovered/Resolved]
  - Back pain [Recovered/Resolved]
  - Device issue [Recovered/Resolved]
  - Device malfunction [Recovered/Resolved]
  - Muscle spasticity [Recovered/Resolved]
  - Fall [Recovered/Resolved]

NARRATIVE: CASE EVENT DATE: 20180729
